FAERS Safety Report 4789673-1 (Version None)
Quarter: 2005Q4

REPORT INFORMATION
  Report Type: 
  Country: None (occurrence: None)
  Receive Date: 20051004
  Receipt Date: 20050922
  Transmission Date: 20060501
  Serious: Yes (Death)
  Sender: FDA-Public Use
  Company Number: 2005133817

PATIENT
  Sex: Male

DRUGS (3)
  1. ZELDOX (CAPSULES) (ZIPRASIDONE) [Suspect]
     Indication: PERSONALITY DISORDER
     Dosage: 160 MG, ORAL
     Route: 048
     Dates: start: 20040929, end: 20041018
  2. ZELDOX (CAPSULES) (ZIPRASIDONE) [Suspect]
     Indication: SCHIZOPHRENIA, PARANOID TYPE
     Dosage: 160 MG, ORAL
     Route: 048
     Dates: start: 20040929, end: 20041018
  3. CISORDINOL (CLOPENTHIXOL HYDROCHLORIDE) [Concomitant]

REACTIONS (4)
  - COMPLETED SUICIDE [None]
  - CONDITION AGGRAVATED [None]
  - FEAR [None]
  - PARANOIA [None]
